FAERS Safety Report 6318017-9 (Version None)
Quarter: 2009Q3

REPORT INFORMATION
  Report Type: 
  Country: None (occurrence: None)
  Receive Date: 20090821
  Receipt Date: 20090819
  Transmission Date: 20100115
  Serious: No
  Sender: FDA-Public Use
  Company Number: B0589418A

PATIENT
  Sex: Female

DRUGS (1)
  1. RELENZA [Suspect]
     Dates: start: 20090819

REACTIONS (2)
  - DRUG EXPOSURE VIA BREAST MILK [None]
  - NO ADVERSE EVENT [None]
